FAERS Safety Report 16919057 (Version 6)
Quarter: 2019Q4

REPORT INFORMATION
  Report Type: Report from Study
  Country: DE (occurrence: DE)
  Receive Date: 20191015
  Receipt Date: 20191125
  Transmission Date: 20200122
  Serious: Yes (Hospitalization, Other)
  Sender: FDA-Public Use
  Company Number: PHHY2019DE098478

PATIENT
  Sex: Female
  Weight: 61 kg

DRUGS (8)
  1. MORPHINE [Suspect]
     Active Substance: MORPHINE
     Indication: BONE PAIN
     Dosage: 10 OT, ONCE IN THE MORNING, TWICE IN THE NOON, ONCE IN THE EVENING
     Route: 048
     Dates: start: 201903, end: 20190620
  2. MORPHINE [Suspect]
     Active Substance: MORPHINE
     Dosage: 30 OT, BID
     Route: 048
     Dates: start: 201903, end: 20190620
  3. KISQALI [Suspect]
     Active Substance: RIBOCICLIB
     Dosage: 600 MG, QD (DAILY (21 DAYS ON / 7 DAYS OFF)))
     Route: 048
     Dates: start: 20191007
  4. KISQALI [Suspect]
     Active Substance: RIBOCICLIB
     Indication: BREAST CANCER METASTATIC
     Dosage: 600 MG, QD (DAILY (21 DAYS ON / 7 DAYS OFF)))
     Route: 048
     Dates: start: 20190417, end: 20190930
  5. LETROZOLE. [Suspect]
     Active Substance: LETROZOLE
     Indication: BREAST CANCER METASTATIC
     Dosage: 2.5 MG, QD
     Route: 048
     Dates: start: 20190417
  6. NOVALGIN [Concomitant]
     Indication: PRODUCT USED FOR UNKNOWN INDICATION
     Dosage: UNK, PRN
     Route: 065
     Dates: start: 201901, end: 201910
  7. PANTOPRAZOLE [Concomitant]
     Active Substance: PANTOPRAZOLE
     Indication: PRODUCT USED FOR UNKNOWN INDICATION
     Dosage: 40 MG, QD
     Route: 065
     Dates: start: 201901
  8. KISQALI [Suspect]
     Active Substance: RIBOCICLIB
     Dosage: 600 MG, QD (DAILY (21 DAYS ON / 7 DAYS OFF)))
     Route: 048
     Dates: start: 20191001, end: 20191006

REACTIONS (10)
  - Leukopenia [Recovered/Resolved]
  - Neutrophil count decreased [Recovered/Resolved]
  - Febrile infection [Recovered/Resolved]
  - Leukopenia [Recovered/Resolved]
  - Nausea [Recovered/Resolved]
  - Pneumonia [Recovered/Resolved]
  - C-reactive protein increased [Recovered/Resolved]
  - Leukopenia [Unknown]
  - Nausea [Recovered/Resolved]
  - Neutropenia [Unknown]

NARRATIVE: CASE EVENT DATE: 20190420
